FAERS Safety Report 22125320 (Version 1)
Quarter: 2023Q1

REPORT INFORMATION
  Report Type: Spontaneous
  Country: US (occurrence: US)
  Receive Date: 20230322
  Receipt Date: 20230322
  Transmission Date: 20230418
  Serious: No
  Sender: FDA-Public Use
  Company Number: US-SA-SAC20230320001192

PATIENT
  Sex: Female

DRUGS (1)
  1. DUPIXENT [Suspect]
     Active Substance: DUPILUMAB
     Indication: Dermatitis
     Dosage: 300 MG, QOW
     Route: 065

REACTIONS (5)
  - Drug hypersensitivity [Unknown]
  - Rash pruritic [Unknown]
  - Rash papular [Unknown]
  - Eczema [Unknown]
  - Product use in unapproved indication [Unknown]
